FAERS Safety Report 15555676 (Version 1)
Quarter: 2018Q4

REPORT INFORMATION
  Report Type: Spontaneous
  Country: US (occurrence: US)
  Receive Date: 20181024
  Receipt Date: 20181024
  Transmission Date: 20190205
  Serious: Yes (Other)
  Sender: FDA-Public Use
  Company Number: None

PATIENT
  Age: 39 Year
  Sex: Male
  Weight: 70.2 kg

DRUGS (2)
  1. MAENG DA KRATOM MITROGYNA SPECIOSA [Suspect]
     Active Substance: MITRAGYNINE\HERBALS
     Indication: INSOMNIA
     Dosage: ?          QUANTITY:1 TEASPOON(S);?
     Route: 048
     Dates: start: 20180509, end: 20181016
  2. MAENG DA KRATOM MITROGYNA SPECIOSA [Suspect]
     Active Substance: MITRAGYNINE\HERBALS
     Indication: ANXIETY
     Dosage: ?          QUANTITY:1 TEASPOON(S);?
     Route: 048
     Dates: start: 20180509, end: 20181016

REACTIONS (12)
  - Withdrawal syndrome [None]
  - Restlessness [None]
  - Confusional state [None]
  - Depressed level of consciousness [None]
  - Anhedonia [None]
  - Mood altered [None]
  - Hyperhidrosis [None]
  - Nausea [None]
  - Asthenia [None]
  - Diarrhoea [None]
  - Panic reaction [None]
  - Irritability [None]

NARRATIVE: CASE EVENT DATE: 20181015
